FAERS Safety Report 20421388 (Version 2)
Quarter: 2023Q1

REPORT INFORMATION
  Report Type: Spontaneous
  Country: FR (occurrence: FR)
  Receive Date: 20220203
  Receipt Date: 20230216
  Transmission Date: 20230418
  Serious: Yes (Hospitalization, Other)
  Sender: FDA-Public Use
  Company Number: None

PATIENT
  Age: 63 Year
  Sex: Male
  Weight: 110 kg

DRUGS (32)
  1. OXYCODONE HYDROCHLORIDE [Suspect]
     Active Substance: OXYCODONE HYDROCHLORIDE
     Indication: Pain
     Dosage: 40 MG, DAILY
     Route: 048
     Dates: start: 20211019, end: 20211224
  2. NALOXEGOL OXALATE [Suspect]
     Active Substance: NALOXEGOL OXALATE
     Indication: Constipation
     Dosage: 25 MG, DAILY
     Dates: start: 20211117, end: 20211207
  3. LOVENOX [Suspect]
     Active Substance: ENOXAPARIN SODIUM
     Indication: Thrombosis prophylaxis
     Dosage: 4000 IU, DAILY
     Dates: start: 20211012, end: 20211219
  4. ZOPICLONE [Suspect]
     Active Substance: ZOPICLONE
     Indication: Insomnia
     Dosage: 3.75 MG, DAILY
     Dates: start: 20211013, end: 20211019
  5. ZOPICLONE [Suspect]
     Active Substance: ZOPICLONE
     Indication: Insomnia
  6. MOVICOL [Suspect]
     Active Substance: POLYETHYLENE GLYCOL 3350\POTASSIUM CHLORIDE\SODIUM BICARBONATE\SODIUM CHLORIDE
     Indication: Constipation
     Dosage: 2 DF, DAILY
     Route: 048
     Dates: start: 20211111, end: 20211207
  7. AMOXICILLIN [Suspect]
     Active Substance: AMOXICILLIN
     Indication: Osteomyelitis
     Dosage: 8 G, DAILY
     Route: 048
     Dates: start: 20211018, end: 20211110
  8. CEFEPIME [Suspect]
     Active Substance: CEFEPIME HYDROCHLORIDE
     Indication: Osteomyelitis
     Dosage: 4 G, DAILY
     Dates: start: 20211208, end: 20211216
  9. CEFEPIME [Suspect]
     Active Substance: CEFEPIME HYDROCHLORIDE
     Indication: Osteomyelitis
  10. CLINDAMYCIN HYDROCHLORIDE [Suspect]
     Active Substance: CLINDAMYCIN HYDROCHLORIDE
     Indication: Osteomyelitis
     Dosage: 2400 MG, DAILY
     Route: 048
     Dates: start: 20211018, end: 20211110
  11. PANTOPRAZOLE [Concomitant]
     Active Substance: PANTOPRAZOLE
     Indication: Product used for unknown indication
     Dosage: UNK
     Route: 065
  12. PANTOPRAZOLE [Concomitant]
     Active Substance: PANTOPRAZOLE
     Dosage: UNK
  13. RISPERIDONE [Concomitant]
     Active Substance: RISPERIDONE
     Indication: Product used for unknown indication
     Dosage: UNK
     Route: 065
  14. RISPERIDONE [Concomitant]
     Active Substance: RISPERIDONE
     Dosage: UNK
  15. LEVEMIR [Concomitant]
     Active Substance: INSULIN DETEMIR
     Indication: Product used for unknown indication
     Dosage: UNK
     Route: 065
  16. LEVEMIR [Concomitant]
     Active Substance: INSULIN DETEMIR
     Dosage: UNK
  17. APIDRA [Concomitant]
     Active Substance: INSULIN GLULISINE
     Indication: Product used for unknown indication
     Dosage: UNK
     Route: 065
  18. APIDRA [Concomitant]
     Active Substance: INSULIN GLULISINE
     Dosage: UNK
  19. TELMISARTAN [Concomitant]
     Active Substance: TELMISARTAN
     Indication: Product used for unknown indication
     Dosage: UNK
     Route: 065
  20. TELMISARTAN [Concomitant]
     Active Substance: TELMISARTAN
     Dosage: UNK
  21. AMLODIPINE [Concomitant]
     Active Substance: AMLODIPINE BESYLATE
     Indication: Product used for unknown indication
     Dosage: UNK
     Route: 065
  22. AMLODIPINE [Concomitant]
     Active Substance: AMLODIPINE BESYLATE
     Dosage: UNK
  23. FUROSEMIDE [Concomitant]
     Active Substance: FUROSEMIDE
     Indication: Product used for unknown indication
     Dosage: UNK
     Route: 065
  24. FUROSEMIDE [Concomitant]
     Active Substance: FUROSEMIDE
     Dosage: UNK
  25. METFORMINE                         /00082701/ [Concomitant]
     Dosage: UNK
     Route: 065
  26. TAMSULOSINE                        /01280301/ [Concomitant]
     Dosage: UNK
     Route: 065
  27. OXYCODONE HYDROCHLORIDE [Suspect]
     Active Substance: OXYCODONE HYDROCHLORIDE
     Indication: Pain
     Dosage: 40 MG, DAILY
     Dates: start: 20211019, end: 20211224
  28. MOVICOL [Suspect]
     Active Substance: POLYETHYLENE GLYCOL 3350\POTASSIUM CHLORIDE\SODIUM BICARBONATE\SODIUM CHLORIDE
     Indication: Constipation
     Dosage: 2 DF, DAILY
     Dates: start: 20211111, end: 20211207
  29. AMOXICILLIN [Suspect]
     Active Substance: AMOXICILLIN
     Indication: Osteomyelitis
     Dosage: 8 G, DAILY
     Dates: start: 20211018, end: 20211110
  30. CLINDAMYCIN [Suspect]
     Active Substance: CLINDAMYCIN
     Indication: Osteomyelitis
     Dosage: 2400 MG, DAILY
     Dates: start: 20211018, end: 20211110
  31. METFORMIN HYDROCHLORIDE [Concomitant]
     Active Substance: METFORMIN HYDROCHLORIDE
     Indication: Product used for unknown indication
     Dosage: UNK
  32. TAMSULOSIN HYDROCHLORIDE [Concomitant]
     Active Substance: TAMSULOSIN HYDROCHLORIDE
     Indication: Product used for unknown indication
     Dosage: UNK

REACTIONS (1)
  - Drug reaction with eosinophilia and systemic symptoms [Recovered/Resolved]

NARRATIVE: CASE EVENT DATE: 20211123
